FAERS Safety Report 10602861 (Version 2)
Quarter: 2015Q2

REPORT INFORMATION
  Report Type: Report from Study
  Country: US (occurrence: US)
  Receive Date: 20141124
  Receipt Date: 20150623
  Transmission Date: 20150821
  Serious: Yes (Hospitalization)
  Sender: FDA-Public Use
  Company Number: US-TAKEDA-2014MPI003076

PATIENT
  Age: 75 Year

DRUGS (4)
  1. VELCADE [Suspect]
     Active Substance: BORTEZOMIB
     Dosage: 1.0 MG/M2
     Route: 058
     Dates: start: 20120209, end: 20120412
  2. VELCADE [Suspect]
     Active Substance: BORTEZOMIB
     Indication: PLASMA CELL MYELOMA
     Dosage: 1.3 MG/M2
     Route: 042
     Dates: start: 20110918, end: 20111228
  3. VELCADE [Suspect]
     Active Substance: BORTEZOMIB
     Dosage: 1.0 MG/M2
     Route: 042
     Dates: start: 20111229, end: 20120208
  4. VELCADE [Suspect]
     Active Substance: BORTEZOMIB
     Dosage: 1 MG/M2, UNK
     Route: 042
     Dates: start: 20120413, end: 20121102

REACTIONS (2)
  - Gastroenteritis viral [Recovered/Resolved]
  - Enterocolitis viral [Recovered/Resolved]

NARRATIVE: CASE EVENT DATE: 20121031
